FAERS Safety Report 8601614-5 (Version None)
Quarter: 2012Q3

REPORT INFORMATION
  Report Type: 
  Country: None (occurrence: None)
  Receive Date: 20120817
  Receipt Date: 20111221
  Transmission Date: 20120928
  Serious: No
  Sender: FDA-Public Use
  Company Number: US-BRISTOL-MYERS SQUIBB COMPANY-16309643

PATIENT
  Age: 64 Year
  Sex: Male

DRUGS (2)
  1. SPRYCEL [Suspect]
  2. SIMVASTATIN [Concomitant]

REACTIONS (4)
  - MYALGIA [None]
  - JOINT SWELLING [None]
  - PRURITUS [None]
  - RASH [None]
